FAERS Safety Report 4592670-2 (Version None)
Quarter: 2005Q1

REPORT INFORMATION
  Report Type: 
  Country: None (occurrence: None)
  Receive Date: 20050222
  Receipt Date: 20050201
  Transmission Date: 20050727
  Serious: Yes (Death)
  Sender: FDA-Public Use
  Company Number: DSA_25401_2004

PATIENT
  Age: 84 Year
  Sex: Male

DRUGS (5)
  1. TEVETEN [Suspect]
     Indication: CARDIAC FAILURE
     Dosage: 600 MG Q DAY PO
     Route: 048
     Dates: start: 20040517, end: 20040830
  2. TEVETEN [Suspect]
     Indication: HYPERTENSION
     Dosage: 600 MG Q DAY PO
     Route: 048
     Dates: start: 20040517, end: 20040830
  3. TORSEMIDE [Concomitant]
  4. SIMVASTATIN [Concomitant]
  5. SOTAHEXAL [Concomitant]

REACTIONS (1)
  - LEFT VENTRICULAR FAILURE [None]
